FAERS Safety Report 8239912-X (Version None)
Quarter: 2012Q1

REPORT INFORMATION
  Report Type: 
  Country: None (occurrence: None)
  Receive Date: 20120328
  Receipt Date: 20120322
  Transmission Date: 20120608
  Serious: Yes (Other)
  Sender: FDA-Public Use
  Company Number: US-AMGEN-USASP2011041935

PATIENT
  Sex: Female

DRUGS (2)
  1. ENBREL [Suspect]
     Dosage: 50 MG, QWK
     Dates: start: 20040115
  2. ENBREL [Suspect]
     Indication: PSORIASIS
     Dosage: 25 MG, UNK

REACTIONS (4)
  - PSORIASIS [None]
  - HEART RATE DECREASED [None]
  - CORONARY ARTERY OCCLUSION [None]
  - GALLBLADDER OPERATION [None]
